FAERS Safety Report 9377045 (Version 3)
Quarter: 2013Q3

REPORT INFORMATION
  Report Type: Spontaneous
  Country: US (occurrence: US)
  Receive Date: 20130701
  Receipt Date: 20130725
  Transmission Date: 20140515
  Serious: Yes (Death, Other)
  Sender: FDA-Public Use
  Company Number: US-PFIZER INC-2013191068

PATIENT
  Age: 83 Year
  Sex: Male

DRUGS (1)
  1. REVATIO [Suspect]
     Indication: COR PULMONALE CHRONIC
     Dosage: 20 MG, 2X/DAY
     Dates: start: 20100623

REACTIONS (2)
  - Cardiac disorder [Fatal]
  - Pulmonary hypertension [Fatal]
